FAERS Safety Report 8841149 (Version 1)
Quarter: 2012Q4

REPORT INFORMATION
  Report Type: 
  Country: NL (occurrence: NL)
  Receive Date: 20121015
  Receipt Date: 20121015
  Transmission Date: 20130627
  Serious: Yes (Hospitalization)
  Sender: FDA-Public Use
  Company Number: NL-PFIZER INC-2012251593

PATIENT
  Age: 34 Year
  Sex: Female
  Weight: 33.5 kg

DRUGS (5)
  1. GENOTROPIN [Suspect]
     Dosage: 0.3 mg, 1x/day. 7inj/wk
     Route: 058
     Dates: start: 20030911
  2. LEVOTHYROXINE [Concomitant]
     Indication: BLOOD THYROID STIMULATING HORMONE DECREASED
     Dosage: UNK
     Dates: start: 19940601
  3. CORTISONE ACETATE [Concomitant]
     Indication: BLOOD CORTICOTROPHIN DECREASED
     Dosage: UNK
     Dates: start: 20000515
  4. PARIET [Concomitant]
     Indication: ABDOMINAL PAIN UPPER
     Dosage: UNK
     Dates: start: 20030515
  5. IBUPROFEN [Concomitant]
     Indication: ANALGESIC THERAPY
     Dosage: UNK
     Dates: start: 20040322

REACTIONS (1)
  - Gastric disorder [Unknown]
